FAERS Safety Report 5981532-1 (Version None)
Quarter: 2008Q4

REPORT INFORMATION
  Report Type: 
  Country: None (occurrence: None)
  Receive Date: 20081202
  Receipt Date: 20081125
  Transmission Date: 20090506
  Serious: Yes (Hospitalization)
  Sender: FDA-Public Use
  Company Number: 2008-GWUS-0958

PATIENT
  Sex: Female

DRUGS (1)
  1. ALDARA [Suspect]
     Dosage: TOPICAL
     Route: 061
     Dates: end: 20081125

REACTIONS (3)
  - CARDIAC FAILURE CONGESTIVE [None]
  - NASAL DISORDER [None]
  - PLEURAL EFFUSION [None]
